FAERS Safety Report 4297771-4 (Version None)
Quarter: 2004Q1

REPORT INFORMATION
  Report Type: 
  Country: None (occurrence: None)
  Receive Date: 20040126
  Receipt Date: 20031104
  Transmission Date: 20041129
  Serious: No
  Sender: FDA-Public Use
  Company Number: USA031151611

PATIENT
  Age: 12 Year
  Sex: Female
  Weight: 31 kg

DRUGS (2)
  1. STRATTERA [Suspect]
     Indication: ATTENTION DEFICIT/HYPERACTIVITY DISORDER
     Dosage: 50 MG/IN THE EVENING
     Dates: start: 20030101
  2. ADDERALL 10 [Concomitant]

REACTIONS (4)
  - EYE SWELLING [None]
  - PRESCRIBED OVERDOSE [None]
  - RASH [None]
  - SWELLING FACE [None]
